FAERS Safety Report 10186065 (Version 2)
Quarter: 2014Q3

REPORT INFORMATION
  Report Type: Spontaneous
  Country: FR (occurrence: FR)
  Receive Date: 20140521
  Receipt Date: 20140812
  Transmission Date: 20150326
  Serious: Yes (Hospitalization)
  Sender: FDA-Public Use
  Company Number: FR-GE HEALTHCARE MEDICAL DIAGNOSTICS-OMPQ-PR-1405S-0474

PATIENT
  Age: 63 Year
  Sex: Female

DRUGS (11)
  1. EZETROL [Concomitant]
     Active Substance: EZETIMIBE
  2. INSULIN [Concomitant]
     Active Substance: INSULIN NOS
  3. LASILIX [Suspect]
     Active Substance: FUROSEMIDE
     Indication: HYPERTENSION
     Route: 048
  4. DAFALGAN CODEINE [Concomitant]
     Active Substance: ACETAMINOPHEN\CODEINE PHOSPHATE
  5. BI PROFENID LP [Suspect]
     Active Substance: KETOPROFEN
     Indication: PAIN
     Route: 048
     Dates: start: 20140408
  6. GLUCOPHAGE [Suspect]
     Active Substance: METFORMIN HYDROCHLORIDE
     Indication: DIABETES MELLITUS
     Route: 048
     Dates: end: 2014
  7. YERVOY [Suspect]
     Active Substance: IPILIMUMAB
     Indication: MALIGNANT MELANOMA
     Dates: start: 20140417
  8. COAPROVEL [Suspect]
     Active Substance: HYDROCHLOROTHIAZIDE\IRBESARTAN
     Indication: HYPERTENSION
     Dosage: 300/25
     Route: 048
     Dates: end: 2014
  9. OMNIPAQUE [Suspect]
     Active Substance: IOHEXOL
     Indication: DIAGNOSTIC PROCEDURE
  10. OMNIPAQUE [Suspect]
     Active Substance: IOHEXOL
     Indication: METASTASIS
     Dosage: DOSE NOT REPORTED
     Route: 065
     Dates: start: 20140408, end: 20140408
  11. CORTANCYL [Concomitant]
     Active Substance: PREDNISONE

REACTIONS (1)
  - Renal failure acute [Recovered/Resolved]

NARRATIVE: CASE EVENT DATE: 20140419
